FAERS Safety Report 20485113 (Version 3)
Quarter: 2022Q1

REPORT INFORMATION
  Report Type: Other
  Country: JP (occurrence: JP)
  Receive Date: 20220217
  Receipt Date: 20220314
  Transmission Date: 20220424
  Serious: Yes (Hospitalization)
  Sender: FDA-Public Use
  Company Number: JP-CHUGAI-2022004323

PATIENT
  Age: 51 Year
  Sex: Female
  Weight: 63.2 kg

DRUGS (4)
  1. ACTEMRA [Suspect]
     Active Substance: TOCILIZUMAB
     Indication: COVID-19
     Dosage: 400 MILLIGRAM
     Route: 065
     Dates: start: 20210821
  2. DEXAMETHASONE [Suspect]
     Active Substance: DEXAMETHASONE
     Indication: COVID-19
     Dosage: 6.6 MILLIGRAM/DAY
     Route: 065
     Dates: start: 2021, end: 2021
  3. HEPARIN CALCIUM [Concomitant]
     Active Substance: HEPARIN CALCIUM
     Indication: Thrombosis prophylaxis
     Dosage: 10000 UNITS/DAY
     Route: 065
     Dates: start: 2021, end: 2021
  4. EDOXABAN TOSYLATE [Concomitant]
     Active Substance: EDOXABAN TOSYLATE
     Indication: Thrombosis prophylaxis
     Dosage: 30MILLIGRAM/DAY
     Route: 048
     Dates: start: 2021, end: 2021

REACTIONS (3)
  - Muscle abscess [Recovered/Resolved]
  - Escherichia infection [Recovered/Resolved]
  - Off label use [Unknown]

NARRATIVE: CASE EVENT DATE: 20210921
